FAERS Safety Report 10420922 (Version 1)
Quarter: 2014Q3

REPORT INFORMATION
  Report Type: Spontaneous
  Country: US (occurrence: None)
  Receive Date: 20140829
  Receipt Date: 20140829
  Transmission Date: 20150326
  Serious: Yes (Life-Threatening)
  Sender: FDA-Public Use
  Company Number: None

PATIENT
  Age: 55 Year
  Sex: Male

DRUGS (1)
  1. VANCOMYCIN [Suspect]
     Active Substance: VANCOMYCIN
     Dates: start: 20140713, end: 20140713

REACTIONS (7)
  - Pruritus [None]
  - Feeling hot [None]
  - Wheezing [None]
  - Cellulitis [None]
  - Dyspnoea [None]
  - Blood pressure systolic decreased [None]
  - Anaphylactic reaction [None]

NARRATIVE: CASE EVENT DATE: 20140713
